FAERS Safety Report 9258600 (Version 2)
Quarter: 2014Q1

REPORT INFORMATION
  Report Type: Spontaneous
  Country: US (occurrence: None)
  Receive Date: 20121212
  Receipt Date: 20130314
  Transmission Date: 20141002
  Serious: No
  Sender: FDA-Public Use
  Company Number: 1211USA005473

PATIENT
  Age: 49 Year
  Sex: Female

DRUGS (3)
  1. VICTRELIS (BOCEPREVIR) CAPSULE [Suspect]
     Indication: HEPATITIS C
     Dosage: UNK
     Dates: start: 20121020
  2. RIBAVIRIN [Suspect]
     Indication: HEPATITIS C
     Dosage: UNK
     Dates: start: 20120912
  3. PEGINTRON (PEGINTERFERON ALFA-2B) POWDER FOR INJECTION [Suspect]
     Indication: HEPATITIS C
     Dosage: UNK
     Dates: start: 20120921

REACTIONS (8)
  - Pain [None]
  - Fall [None]
  - Contusion [None]
  - Immune system disorder [None]
  - Red blood cell count decreased [None]
  - Balance disorder [None]
  - Dizziness [None]
  - Fatigue [None]
